FAERS Safety Report 8973951 (Version 1)
Quarter: 2012Q4

REPORT INFORMATION
  Report Type: 
  Country: BR (occurrence: BR)
  Receive Date: 20121218
  Receipt Date: 20121218
  Transmission Date: 20130627
  Serious: Yes (Other)
  Sender: FDA-Public Use
  Company Number: PHHY2012BR116138

PATIENT
  Sex: Female
  Weight: 123 kg

DRUGS (5)
  1. DICLOFENAC [Suspect]
     Indication: PAIN
  2. VOLTAREN [Suspect]
     Indication: PAIN
     Dosage: 2 DF, QD (per day)
     Route: 048
  3. MELOXICAM [Concomitant]
     Indication: PAIN
     Dosage: 1 DF, QD (per day)
     Route: 048
  4. RANITIDINE [Concomitant]
     Indication: PAIN
     Dosage: 1 DF, QD (per day)
     Route: 048
  5. CYCLOBENZAPRINE [Concomitant]
     Indication: PAIN
     Dosage: 1 DF, QD (per day)
     Route: 048

REACTIONS (4)
  - Diabetes mellitus [Not Recovered/Not Resolved]
  - Osteoarthritis [Not Recovered/Not Resolved]
  - Pain [Not Recovered/Not Resolved]
  - Hypertension [Recovered/Resolved]
